FAERS Safety Report 6903056-7 (Version None)
Quarter: 2010Q3

REPORT INFORMATION
  Report Type: 
  Country: None (occurrence: None)
  Receive Date: 20100803
  Receipt Date: 20080714
  Transmission Date: 20110219
  Serious: No
  Sender: FDA-Public Use
  Company Number: US-PFIZER INC-2008059397

PATIENT
  Sex: Female
  Weight: 78.9 kg

DRUGS (1)
  1. LYRICA [Suspect]
     Indication: PAIN
     Dates: start: 20080326, end: 20080401

REACTIONS (3)
  - COAGULOPATHY [None]
  - VISION BLURRED [None]
  - VISUAL ACUITY REDUCED [None]
